FAERS Safety Report 8380625-1 (Version None)
Quarter: 2012Q2

REPORT INFORMATION
  Report Type: 
  Country: None (occurrence: None)
  Receive Date: 20120523
  Receipt Date: 20120514
  Transmission Date: 20120825
  Serious: Yes (Hospitalization)
  Sender: FDA-Public Use
  Company Number: US-ACTELION-A-US2012-65740

PATIENT

DRUGS (4)
  1. ADCIRCA [Concomitant]
  2. ASPIRIN [Concomitant]
  3. TRACLEER [Suspect]
     Indication: PULMONARY ARTERIAL HYPERTENSION
     Dosage: UNK
     Route: 048
  4. TYVASO [Concomitant]

REACTIONS (3)
  - DYSPNOEA [None]
  - BLOOD PRESSURE DECREASED [None]
  - CATHETERISATION CARDIAC [None]
